FAERS Safety Report 21529324 (Version 1)
Quarter: 2022Q4

REPORT INFORMATION
  Report Type: Spontaneous
  Country: JP (occurrence: JP)
  Receive Date: 20221031
  Receipt Date: 20221031
  Transmission Date: 20230113
  Serious: Yes (Other)
  Sender: FDA-Public Use
  Company Number: JP-DSJP-DSJ-2022-138825

PATIENT
  Age: 7 Decade
  Sex: Male
  Weight: 51.6 kg

DRUGS (20)
  1. EDOXABAN TOSYLATE [Suspect]
     Active Substance: EDOXABAN TOSYLATE
     Indication: Pulmonary embolism
     Dosage: 30 MG, QD, AFTER BREAKFAST
     Route: 065
  2. CABOZANTINIB [Suspect]
     Active Substance: CABOZANTINIB
     Indication: Renal cell carcinoma
     Dosage: 60MG/DAY
     Route: 048
  3. LEVOTHYROXINE SODIUM [Interacting]
     Active Substance: LEVOTHYROXINE SODIUM
     Indication: Hypothyroidism
     Dosage: 50 UG, QD, AFTER BREAKFAST
     Route: 048
  4. LEVOTHYROXINE SODIUM [Interacting]
     Active Substance: LEVOTHYROXINE SODIUM
     Dosage: 50 UG, QD, WAKING UP
     Route: 048
  5. CALCIUM POLYSTYRENE SULFONATE [Interacting]
     Active Substance: CALCIUM POLYSTYRENE SULFONATE
     Indication: Blood potassium increased
     Dosage: 25 G, TID, AFTER EACH MEALS
     Route: 065
  6. CILNIDIPINE [Concomitant]
     Active Substance: CILNIDIPINE
     Dosage: 10 MG, QD, AFTER BREAKFAST
     Route: 065
  7. HYDROCHLOROTHIAZIDE\LOSARTAN POTASSIUM [Concomitant]
     Active Substance: HYDROCHLOROTHIAZIDE\LOSARTAN POTASSIUM
     Dosage: 1 DF, QD, AFTER BREAKFAST
     Route: 065
  8. LOSARTAN POTASSIUM [Concomitant]
     Active Substance: LOSARTAN POTASSIUM
     Dosage: 50 MG, QD, AFTER BREAKFAST
     Route: 065
  9. TOCOPHERYL NICOTINATE, D-.ALPHA. [Concomitant]
     Active Substance: TOCOPHERYL NICOTINATE, D-.ALPHA.
     Dosage: 100 MG, QD, AFTER BREAKFAST
     Route: 065
  10. FURSULTIAMINE [Concomitant]
     Active Substance: FURSULTIAMINE
     Dosage: 25 MG, TID, AFTER EACH MEALS
     Route: 065
  11. CARBAZOCHROME SODIUM SULFONATE [Concomitant]
     Active Substance: CARBAZOCHROME SODIUM SULFONATE
     Dosage: 30 MG, TID, AFTER EACH MEALS
     Route: 065
  12. BENPROPERINE PHOSPHATE [Concomitant]
     Active Substance: BENPROPERINE PHOSPHATE
     Dosage: 20 MG, TID, AFTER EACH MEALS
     Route: 065
  13. HEPARINOID [Concomitant]
     Dosage: UNK, APPROPRIATE APPLICATION SEVERAL TIMES A DAY
     Route: 065
  14. NAPROXEN [Concomitant]
     Active Substance: NAPROXEN
     Indication: Pyrexia
     Dosage: 300MG/DAY
     Route: 065
  15. OXYCODONE HYDROCHLORIDE [Concomitant]
     Active Substance: OXYCODONE HYDROCHLORIDE
     Indication: Cancer pain
     Dosage: 10MG/DAY
     Route: 065
  16. OXYCODONE HYDROCHLORIDE [Concomitant]
     Active Substance: OXYCODONE HYDROCHLORIDE
     Dosage: 15MG/DAY
     Route: 065
  17. MAINTENANCE MEDIUM [Concomitant]
     Indication: Hypophagia
     Dosage: 500ML/DAY
     Route: 065
  18. AMINO ACID/WATER-SOLUBLE VITAMIN MIXED ELECTROLYTE SOLUTION [Concomitant]
     Indication: Feeding disorder
     Dosage: 500ML/DAY
     Route: 065
  19. SODIUM CHLORIDE [Concomitant]
     Active Substance: SODIUM CHLORIDE
     Dosage: 1000ML/DAY
     Route: 065
  20. SODIUM CHLORIDE [Concomitant]
     Active Substance: SODIUM CHLORIDE
     Dosage: 500ML/DAY
     Route: 065

REACTIONS (5)
  - Renal impairment [Unknown]
  - Hyponatraemia [Recovering/Resolving]
  - Hypothyroidism [Recovering/Resolving]
  - Drug interaction [Unknown]
  - Palmar-plantar erythrodysaesthesia syndrome [Unknown]
